FAERS Safety Report 19099141 (Version 2)
Quarter: 2021Q2

REPORT INFORMATION
  Report Type: Not Available
  Country: None (occurrence: None)
  Receive Date: 20210406
  Receipt Date: 20210519
  Transmission Date: 20210717
  Serious: Yes (Hospitalization, Other)
  Sender: FDA-Public Use
  Company Number: US-AKORN-164450

PATIENT
  Sex: Female
  Weight: 3 kg

DRUGS (1)
  1. MYORISAN [Suspect]
     Active Substance: ISOTRETINOIN

REACTIONS (4)
  - Failure to thrive [Recovered/Resolved]
  - Foetal exposure during pregnancy [Recovered/Resolved]
  - Underweight [Unknown]
  - Hyperbilirubinaemia neonatal [Recovered/Resolved]
